FAERS Safety Report 16859368 (Version 3)
Quarter: 2020Q2

REPORT INFORMATION
  Report Type: Report from Study
  Country: None (occurrence: US)
  Receive Date: 20190927
  Receipt Date: 20200422
  Transmission Date: 20200713
  Serious: Yes (Other)
  Sender: FDA-Public Use
  Company Number: US-ABBVIE-19K-163-2935769-00

PATIENT
  Age: 61 Year
  Sex: Male

DRUGS (2)
  1. HUMIRA [Suspect]
     Active Substance: ADALIMUMAB
     Indication: RHEUMATOID ARTHRITIS
     Route: 058
     Dates: start: 20190718, end: 2019
  2. HUMIRA [Suspect]
     Active Substance: ADALIMUMAB
     Route: 058
     Dates: start: 2019

REACTIONS (12)
  - Gait disturbance [Recovering/Resolving]
  - Joint stiffness [Not Recovered/Not Resolved]
  - Cellulitis [Recovered/Resolved]
  - Injection site erythema [Recovered/Resolved]
  - Arthralgia [Recovering/Resolving]
  - Joint swelling [Not Recovered/Not Resolved]
  - Arthralgia [Not Recovered/Not Resolved]
  - Joint swelling [Recovering/Resolving]
  - Retinal detachment [Unknown]
  - Drug ineffective [Not Recovered/Not Resolved]
  - Visual impairment [Unknown]
  - Depression [Unknown]

NARRATIVE: CASE EVENT DATE: 2019
